FAERS Safety Report 16355406 (Version 2)
Quarter: 2019Q2

REPORT INFORMATION
  Report Type: Spontaneous
  Country: SG (occurrence: SG)
  Receive Date: 20190525
  Receipt Date: 20190604
  Transmission Date: 20190711
  Serious: Yes (Other)
  Sender: FDA-Public Use
  Company Number: SG-REGENERON PHARMACEUTICALS, INC.-2019-33069

PATIENT

DRUGS (1)
  1. EYLEA [Suspect]
     Active Substance: AFLIBERCEPT
     Indication: PRODUCT USED FOR UNKNOWN INDICATION
     Dosage: UNKNOWN SITE, DOSE, FREQUENCY AND TOTAL NUMBER OF INJECTIONS
     Route: 031

REACTIONS (2)
  - Product prescribing issue [Unknown]
  - Condition aggravated [Unknown]
